FAERS Safety Report 9517799 (Version 1)
Quarter: 2013Q3

REPORT INFORMATION
  Report Type: Spontaneous
  Country: US (occurrence: US)
  Receive Date: 20130912
  Receipt Date: 20130912
  Transmission Date: 20140515
  Serious: Yes (Life-Threatening, Disabling, Other)
  Sender: FDA-Public Use
  Company Number: US-JNJFOC-20130905499

PATIENT
  Sex: 0
  Weight: 90.72 kg

DRUGS (4)
  1. TYLENOL EXTRA STRENGTH [Suspect]
     Indication: MIGRAINE
     Route: 048
     Dates: start: 200911, end: 20091215
  2. TYLENOL EXTRA STRENGTH [Suspect]
     Indication: HEADACHE
     Route: 048
     Dates: start: 200911, end: 20091215
  3. ALPRAZOLAM [Concomitant]
     Route: 065
     Dates: start: 2009, end: 2011
  4. FLUOXETINE [Concomitant]
     Indication: DEPRESSION
     Route: 065
     Dates: start: 2010

REACTIONS (7)
  - Liver injury [Unknown]
  - Fatigue [Unknown]
  - Hepatitis B [Unknown]
  - Renal failure acute [Unknown]
  - Encephalopathy [Unknown]
  - Depression [Unknown]
  - Anxiety [Unknown]
